FAERS Safety Report 23086356 (Version 2)
Quarter: 2023Q4

REPORT INFORMATION
  Report Type: Report from Study
  Country: US (occurrence: US)
  Receive Date: 20231019
  Receipt Date: 20231027
  Transmission Date: 20240109
  Serious: Yes (Other)
  Sender: FDA-Public Use
  Company Number: US-ABBVIE-5457160

PATIENT
  Sex: Male

DRUGS (1)
  1. VENCLEXTA [Suspect]
     Active Substance: VENETOCLAX
     Indication: Plasma cell leukaemia
     Dosage: FORM STRENGTH: 100 MG ?TAKE 8 TABLETS BY MOUTH EVERY DAY WITH BREAKFAST
     Route: 048

REACTIONS (6)
  - Acute kidney injury [Unknown]
  - Hypertension [Unknown]
  - Anaemia [Unknown]
  - Type 2 diabetes mellitus [Unknown]
  - Secondary hyperthyroidism [Unknown]
  - Anaemia [Unknown]
